FAERS Safety Report 8609601 (Version 2)
Quarter: 2014Q1

REPORT INFORMATION
  Report Type: Spontaneous
  Country: US (occurrence: US)
  Receive Date: 20120612
  Receipt Date: 20140122
  Transmission Date: 20141002
  Serious: Yes (Other)
  Sender: FDA-Public Use
  Company Number: US-ASTRAZENECA-2012SE34746

PATIENT
  Age: 54 Year
  Sex: Male

DRUGS (5)
  1. NEXIUM [Suspect]
     Route: 048
  2. LOVASTATIN [Concomitant]
  3. LISINOPRIL [Concomitant]
  4. PROVENTIL [Concomitant]
  5. ARTHROTEC 75 [Concomitant]

REACTIONS (3)
  - Joint dislocation [Unknown]
  - Osteoporosis [Unknown]
  - Multiple fractures [Unknown]
